FAERS Safety Report 6347188-3 (Version None)
Quarter: 2009Q3

REPORT INFORMATION
  Report Type: 
  Country: None (occurrence: None)
  Receive Date: 20090910
  Receipt Date: 20090902
  Transmission Date: 20100115
  Serious: Yes (Hospitalization)
  Sender: FDA-Public Use
  Company Number: PHHO2009GB10461

PATIENT
  Sex: Male
  Weight: 65 kg

DRUGS (4)
  1. RAD 666 RAD+TAB [Suspect]
     Indication: LIVER TRANSPLANT
     Dosage: 4 MG, BID
     Route: 048
     Dates: start: 20090311
  2. TACROLIMUS COMP-TAC+ [Suspect]
     Indication: LIVER TRANSPLANT
     Dosage: UNK
     Dates: start: 20090301
  3. PREDNISOLONE [Concomitant]
     Dosage: 5 MG, QD
     Route: 048
  4. ASPIRIN [Concomitant]

REACTIONS (1)
  - LIVER TRANSPLANT REJECTION [None]
